FAERS Safety Report 19243453 (Version 1)
Quarter: 2021Q2

REPORT INFORMATION
  Report Type: Spontaneous
  Country: IT (occurrence: IT)
  Receive Date: 20210511
  Receipt Date: 20210511
  Transmission Date: 20210717
  Serious: Yes (Other)
  Sender: FDA-Public Use
  Company Number: IT-PFIZER INC-2021475520

PATIENT

DRUGS (15)
  1. EUTIROX [Concomitant]
     Active Substance: LEVOTHYROXINE SODIUM
  2. PERTUZUMAB. [Suspect]
     Active Substance: PERTUZUMAB
     Indication: HER2 POSITIVE BREAST CANCER
     Dosage: 420 MG, EVERY 3 WEEKS (MOST RECENT DOSE PRIOR TO AE 18SEP2018)
     Route: 042
     Dates: start: 20171116
  3. PLASIL [METOCLOPRAMIDE] [Concomitant]
     Active Substance: METOCLOPRAMIDE
  4. SETOFILM [Concomitant]
     Active Substance: ONDANSETRON
  5. TRASTUZUMAB EMTANSINE [Suspect]
     Active Substance: ADO-TRASTUZUMAB EMTANSINE
     Indication: BREAST CANCER
     Dosage: 3.6 MG/KG Q3W ? EVERY 3 WEEKS
     Route: 042
     Dates: start: 20181008
  6. LANSOPRAZOLO [Concomitant]
     Active Substance: LANSOPRAZOLE
  7. AROXIL [Concomitant]
     Dates: start: 20180326
  8. BISOPROLOLO [Concomitant]
     Active Substance: BISOPROLOL FUMARATE
  9. PERTUZUMAB. [Suspect]
     Active Substance: PERTUZUMAB
     Indication: BREAST CANCER METASTATIC
     Dosage: 420 MG, EVERY 3 WEEKS
     Route: 042
     Dates: start: 20171116, end: 20180917
  10. TRASTUZUMAB. [Suspect]
     Active Substance: TRASTUZUMAB
     Indication: HER2 POSITIVE BREAST CANCER
     Dosage: 6 MG/KG EVERY 3 WEEKS
     Route: 042
     Dates: start: 20171116, end: 20180917
  11. MOVICOL [Concomitant]
     Active Substance: POLYETHYLENE GLYCOL 3350\POTASSIUM CHLORIDE\SODIUM BICARBONATE\SODIUM CHLORIDE
     Route: 065
  12. RAMIPRIL. [Concomitant]
     Active Substance: RAMIPRIL
  13. DOCETAXEL. [Suspect]
     Active Substance: DOCETAXEL
     Indication: BREAST CANCER METASTATIC
     Dosage: 75 MG/M2, EVERY 3 WEEKS (MOST RECENT DOSE PRIOR TO AE 06MAR2018)
     Route: 042
     Dates: start: 20171116, end: 20180305
  14. DOCETAXEL. [Suspect]
     Active Substance: DOCETAXEL
     Indication: BREAST CANCER METASTATIC
     Dosage: 75 MG/M2, EVERY 3 WEEKS (MOST RECENT DOSE PRIOR TO AE 06MAR2018)
     Route: 042
     Dates: start: 20171116
  15. TRASTUZUMAB. [Suspect]
     Active Substance: TRASTUZUMAB
     Indication: HER2 POSITIVE BREAST CANCER
     Dosage: 6 MG/KG EVERY 3 WEEKS (MOST RECENT DOSE PRIOR TO AE 18SEP2018)
     Route: 042
     Dates: start: 20171116

REACTIONS (4)
  - Eschar [Recovered/Resolved]
  - Neuropathy peripheral [Recovered/Resolved]
  - Pruritus [Recovered/Resolved]
  - Rash erythematous [Recovered/Resolved]

NARRATIVE: CASE EVENT DATE: 20180115
